FAERS Safety Report 9798189 (Version 2)
Quarter: 2014Q1

REPORT INFORMATION
  Report Type: Report from Study
  Country: IT (occurrence: IT)
  Receive Date: 20140106
  Receipt Date: 20140116
  Transmission Date: 20141002
  Serious: Yes (Death, Hospitalization)
  Sender: FDA-Public Use
  Company Number: IT-IPSEN BIOPHARMACEUTICALS, INC.-2014-0035

PATIENT
  Age: 60 Year
  Sex: Female
  Weight: 48 kg

DRUGS (1)
  1. IPSTYL 120MG [Suspect]
     Indication: PRODUCT USED FOR UNKNOWN INDICATION
     Dosage: NOT REPORTED
     Route: 065

REACTIONS (2)
  - Respiratory failure [Fatal]
  - Dyspnoea [Fatal]
